FAERS Safety Report 7947237-2 (Version None)
Quarter: 2011Q4

REPORT INFORMATION
  Report Type: 
  Country: None (occurrence: None)
  Receive Date: 20111129
  Receipt Date: 20111115
  Transmission Date: 20120403
  Serious: Yes (Hospitalization)
  Sender: FDA-Public Use
  Company Number: US-ASTRAZENECA-2011SE54762

PATIENT
  Age: 64 Year
  Sex: Female

DRUGS (8)
  1. SEROQUEL [Suspect]
     Route: 048
  2. AMBIEN [Concomitant]
  3. ATIVAN [Concomitant]
  4. PREDNISONE TAB [Concomitant]
  5. DEPAKOTE [Concomitant]
  6. SEROQUEL [Suspect]
     Indication: BIPOLAR DISORDER
     Route: 048
  7. PREVACID [Concomitant]
  8. LAMICTAL [Concomitant]

REACTIONS (10)
  - DRUG LEVEL INCREASED [None]
  - SOMNOLENCE [None]
  - BLOOD GLUCOSE INCREASED [None]
  - OVERDOSE [None]
  - MENTAL DISORDER [None]
  - HEAD INJURY [None]
  - CONTUSION [None]
  - BIPOLAR I DISORDER [None]
  - WRONG TECHNIQUE IN DRUG USAGE PROCESS [None]
  - FALL [None]
